FAERS Safety Report 12158469 (Version 1)
Quarter: 2016Q1

REPORT INFORMATION
  Report Type: Spontaneous
  Country: US (occurrence: None)
  Receive Date: 20160307
  Receipt Date: 20160307
  Transmission Date: 20160526
  Serious: Yes (Hospitalization)
  Sender: FDA-Public Use
  Company Number: None

PATIENT
  Age: 31 Year
  Sex: Female
  Weight: 57.15 kg

DRUGS (1)
  1. STELARA [Suspect]
     Active Substance: USTEKINUMAB
     Indication: PSORIASIS
     Dosage: 10-12 WEEKS INJECT
     Dates: start: 20160225

REACTIONS (9)
  - Ovarian cyst [None]
  - Asthenia [None]
  - Pain [None]
  - Nausea [None]
  - Dizziness [None]
  - Back pain [None]
  - Vision blurred [None]
  - Headache [None]
  - Impaired work ability [None]

NARRATIVE: CASE EVENT DATE: 20160304
